FAERS Safety Report 6967935-7 (Version None)
Quarter: 2010Q3

REPORT INFORMATION
  Report Type: 
  Country: None (occurrence: None)
  Receive Date: 20100823
  Receipt Date: 20100604
  Transmission Date: 20110219
  Serious: No
  Sender: FDA-Public Use
  Company Number: 014156

PATIENT
  Sex: Male

DRUGS (1)
  1. CIMZIA [Suspect]
     Indication: CROHN'S DISEASE
     Dosage: (UNKNOWN DOSE SUBCUTANEOUS)
     Route: 058

REACTIONS (4)
  - ABDOMINAL PAIN [None]
  - BURNING MOUTH SYNDROME [None]
  - CROHN'S DISEASE [None]
  - HAEMATOCHEZIA [None]
